FAERS Safety Report 12890139 (Version 1)
Quarter: 2016Q4

REPORT INFORMATION
  Report Type: Spontaneous
  Country: US (occurrence: US)
  Receive Date: 20161027
  Receipt Date: 20161027
  Transmission Date: 20170207
  Serious: No
  Sender: FDA-Public Use
  Company Number: US-MYLANLABS-2015M1032290

PATIENT
  Sex: Male

DRUGS (4)
  1. RISPERIDONE TABLETS, USP [Suspect]
     Active Substance: RISPERIDONE
     Indication: BIPOLAR DISORDER
     Dosage: 2 MG, QD
     Route: 048
     Dates: start: 2012
  2. RISPERIDONE TABLETS, USP [Suspect]
     Active Substance: RISPERIDONE
     Indication: SCHIZOPHRENIA
  3. RISPERIDONE TABLETS, USP [Suspect]
     Active Substance: RISPERIDONE
     Indication: SCHIZOPHRENIA
  4. RISPERIDONE TABLETS, USP [Suspect]
     Active Substance: RISPERIDONE
     Indication: BIPOLAR DISORDER
     Dosage: 4 MG, QD
     Route: 048
     Dates: start: 2012

REACTIONS (1)
  - Gynaecomastia [Not Recovered/Not Resolved]

NARRATIVE: CASE EVENT DATE: 2012
